FAERS Safety Report 23210989 (Version 1)
Quarter: 2023Q4

REPORT INFORMATION
  Report Type: Spontaneous
  Country: IT (occurrence: IT)
  Receive Date: 20231121
  Receipt Date: 20231121
  Transmission Date: 20240110
  Serious: Yes (Other)
  Sender: FDA-Public Use
  Company Number: IT-drreddys-LIT/ITL/23/0183514

PATIENT
  Age: 59 Year
  Sex: Male

DRUGS (5)
  1. PEMETREXED [Suspect]
     Active Substance: PEMETREXED
     Indication: Non-small cell lung cancer metastatic
     Dates: start: 201908, end: 201911
  2. CISPLATIN [Concomitant]
     Active Substance: CISPLATIN
     Indication: Non-small cell lung cancer stage IV
     Dates: start: 201908, end: 201911
  3. NINTEDANIB [Concomitant]
     Active Substance: NINTEDANIB
     Indication: Non-small cell lung cancer stage IV
  4. DOCETAXEL [Concomitant]
     Active Substance: DOCETAXEL\DOCETAXEL ANHYDROUS
     Indication: Non-small cell lung cancer stage IV
  5. PRALSETINIB [Concomitant]
     Active Substance: PRALSETINIB
     Indication: Non-small cell lung cancer stage IV
     Dosage: 400 MG/DAY

REACTIONS (1)
  - Drug ineffective [Unknown]
